FAERS Safety Report 11782634 (Version 3)
Quarter: 2019Q1

REPORT INFORMATION
  Report Type: Report from Study
  Country: KR (occurrence: KR)
  Receive Date: 20151127
  Receipt Date: 20190123
  Transmission Date: 20190417
  Serious: Yes (Other)
  Sender: FDA-Public Use
  Company Number: KR-ROCHE-1235796

PATIENT

DRUGS (3)
  1. CISPLATIN. [Suspect]
     Active Substance: CISPLATIN
     Indication: GASTRIC CANCER
     Dosage: DOSE: 60-80 MG/M2; RECOMMENDED PHASE 2 DOSE (RP2D): 60 MG/M2
     Route: 042
  2. CAPECITABINE. [Suspect]
     Active Substance: CAPECITABINE
     Indication: GASTRIC CANCER
     Dosage: DOSE: 800-1000 MG/M2; RECOMMENDED PHASE 2 DOSE (RP2D): 1000 MG/M2
     Route: 048
  3. VORINOSTAT [Suspect]
     Active Substance: VORINOSTAT
     Indication: GASTRIC CANCER
     Dosage: DOSE: 300-400 MG; RECOMMENDED PHASE 2 DOSE (RP2D): 400 MG
     Route: 048

REACTIONS (19)
  - Decreased appetite [Unknown]
  - Fatigue [Unknown]
  - Palmar-plantar erythrodysaesthesia syndrome [Unknown]
  - Abdominal pain [Unknown]
  - Peripheral artery thrombosis [Unknown]
  - Thrombocytopenia [Unknown]
  - Pulmonary embolism [Recovered/Resolved]
  - Peripheral sensory neuropathy [Unknown]
  - Cerebral infarction [Unknown]
  - Cerebral haemorrhage [Unknown]
  - Anaemia [Unknown]
  - Neutropenia [Unknown]
  - Febrile neutropenia [Unknown]
  - Nausea [Unknown]
  - Diarrhoea [Unknown]
  - Stomatitis [Unknown]
  - Embolic cerebral infarction [Recovered/Resolved]
  - Vomiting [Unknown]
  - Deep vein thrombosis [Unknown]
